FAERS Safety Report 24434091 (Version 3)
Quarter: 2024Q4

REPORT INFORMATION
  Report Type: Report from Study
  Country: BR (occurrence: BR)
  Receive Date: 20241014
  Receipt Date: 20241022
  Transmission Date: 20250115
  Serious: Yes (Hospitalization, Other)
  Sender: ABBVIE
  Company Number: BR-ABBVIE-5959825

PATIENT
  Age: 59 Year
  Sex: Male
  Weight: 81 kg

DRUGS (2)
  1. SKYRIZI [Suspect]
     Active Substance: RISANKIZUMAB-RZAA
     Indication: Psoriasis
     Route: 058
     Dates: start: 20211119, end: 20240101
  2. AMOXICILLIN\CLAVULANATE POTASSIUM [Suspect]
     Active Substance: AMOXICILLIN\CLAVULANATE POTASSIUM
     Indication: Product used for unknown indication
     Route: 065

REACTIONS (9)
  - Cellulitis [Recovered/Resolved]
  - Arrhythmia [Recovered/Resolved]
  - Allergic oedema [Recovered/Resolved]
  - Wound [Recovering/Resolving]
  - Sepsis [Recovered/Resolved]
  - Drug hypersensitivity [Recovered/Resolved]
  - Cellulitis [Unknown]
  - Blister [Recovered/Resolved]
  - Cellulitis [Recovered/Resolved]

NARRATIVE: CASE EVENT DATE: 20231101
